FAERS Safety Report 17575996 (Version 5)
Quarter: 2024Q1

REPORT INFORMATION
  Report Type: Spontaneous
  Country: DE (occurrence: DE)
  Receive Date: 20200324
  Receipt Date: 20240228
  Transmission Date: 20240410
  Serious: Yes (Other)
  Sender: FDA-Public Use
  Company Number: DE-GEDEON RICHTER PLC.-2020GR_BP001006

PATIENT
  Age: 4 Year
  Sex: Female

DRUGS (2)
  1. ESTRADIOL HEMIHYDRATE [Suspect]
     Active Substance: ESTRADIOL HEMIHYDRATE
     Indication: Product used for unknown indication
     Dosage: MOTHER REPORTED SELF-APPLICATION OF TOPICAL ESTRADIOL (CREAM)
     Route: 061
  2. ESTRADIOL HEMIHYDRATE [Suspect]
     Active Substance: ESTRADIOL HEMIHYDRATE
     Indication: Product used for unknown indication
     Dosage: MOTHER REPORTED SELF-APPLICATION OF TOPICAL ESTRADIOL (CREAM)
     Route: 061

REACTIONS (3)
  - Exposure via skin contact [Recovering/Resolving]
  - Pseudoprecocious puberty [Recovering/Resolving]
  - Breast enlargement [Recovering/Resolving]
